FAERS Safety Report 20748013 (Version 10)
Quarter: 2023Q1

REPORT INFORMATION
  Report Type: Report from Study
  Country: US (occurrence: US)
  Receive Date: 20220425
  Receipt Date: 20230221
  Transmission Date: 20230417
  Serious: Yes (Other)
  Sender: FDA-Public Use
  Company Number: US-PFIZER INC-202200176386

PATIENT
  Sex: Female
  Weight: 95.25 kg

DRUGS (5)
  1. LYRICA [Suspect]
     Active Substance: PREGABALIN
     Indication: Pain
     Dosage: 200 MILLIGRAM, TID
     Route: 065
  2. LYRICA [Suspect]
     Active Substance: PREGABALIN
     Indication: Neuropathy peripheral
     Dosage: 150 MILLIGRAM, QID
     Route: 048
  3. LYRICA [Suspect]
     Active Substance: PREGABALIN
     Dosage: 200 MILLIGRAM, BID
     Route: 065
  4. LYRICA [Suspect]
     Active Substance: PREGABALIN
     Dosage: 150 MILLIGRAM, QID
     Route: 048
  5. LYRICA [Suspect]
     Active Substance: PREGABALIN
     Dosage: 25 MILLIGRAM
     Route: 065

REACTIONS (10)
  - Pain in extremity [Unknown]
  - Diabetes mellitus [Unknown]
  - Headache [Unknown]
  - Burning sensation [Unknown]
  - Drug ineffective [Unknown]
  - Intentional product misuse [Unknown]
  - Erythema [Unknown]
  - Feeling hot [Unknown]
  - Paraesthesia [Unknown]
  - Product dose omission issue [Unknown]
